FAERS Safety Report 8612184-X (Version None)
Quarter: 2012Q3

REPORT INFORMATION
  Report Type: 
  Country: None (occurrence: None)
  Receive Date: 20120822
  Receipt Date: 20120814
  Transmission Date: 20120928
  Serious: Yes (Other)
  Sender: FDA-Public Use
  Company Number: US-PURDUE-USA-2012-0091569

PATIENT
  Sex: Female

DRUGS (1)
  1. OXYCODONE HCL [Suspect]
     Indication: DRUG ABUSE

REACTIONS (3)
  - AMNESIA [None]
  - UNRESPONSIVE TO STIMULI [None]
  - DRUG ABUSE [None]
